FAERS Safety Report 5586865-9 (Version None)
Quarter: 2008Q1

REPORT INFORMATION
  Report Type: 
  Country: None (occurrence: None)
  Receive Date: 20080108
  Receipt Date: 20080108
  Transmission Date: 20080703
  Serious: Yes (Other)
  Sender: FDA-Public Use
  Company Number: None

PATIENT
  Age: 72 Year
  Sex: Male

DRUGS (10)
  1. RENAGEL [Suspect]
     Indication: HYPERPHOSPHATAEMIA
     Dosage: 400 MG TID PO
     Route: 048
     Dates: start: 20071229, end: 20080101
  2. ATROVENT/ALBUTEROL NEBS [Concomitant]
  3. NORVASC [Concomitant]
  4. NEXIUM [Concomitant]
  5. INSULIN ASPART [Concomitant]
  6. NPH ILETIN II [Concomitant]
  7. LEVOFLOXACIN [Concomitant]
  8. NIFEREX [Concomitant]
  9. DETROL LA [Concomitant]
  10. ACETAMINOPHEN [Concomitant]

REACTIONS (2)
  - PRURITUS [None]
  - URTICARIA [None]
